FAERS Safety Report 11349996 (Version 1)
Quarter: 2015Q3

REPORT INFORMATION
  Report Type: Report from Study
  Country: US (occurrence: US)
  Receive Date: 20150807
  Receipt Date: 20150807
  Transmission Date: 20151125
  Serious: Yes (Hospitalization)
  Sender: FDA-Public Use
  Company Number: US-TEVA-583066USA

PATIENT
  Age: 60 Year
  Sex: Male
  Weight: 87.1 kg

DRUGS (1)
  1. TREANDA [Suspect]
     Active Substance: BENDAMUSTINE HYDROCHLORIDE
     Indication: PLASMA CELL MYELOMA
     Route: 042
     Dates: start: 20150714, end: 20150715

REACTIONS (4)
  - Febrile neutropenia [Not Recovered/Not Resolved]
  - Pancytopenia [Recovering/Resolving]
  - Oesophagitis [Recovering/Resolving]
  - Mucosal inflammation [Recovering/Resolving]

NARRATIVE: CASE EVENT DATE: 201507
